FAERS Safety Report 16799325 (Version 3)
Quarter: 2019Q4

REPORT INFORMATION
  Report Type: Report from Study
  Country: IT (occurrence: IT)
  Receive Date: 20190912
  Receipt Date: 20191002
  Transmission Date: 20200122
  Serious: Yes (Other)
  Sender: FDA-Public Use
  Company Number: IT-PFIZER INC-2019388179

PATIENT
  Age: 88 Year
  Sex: Female

DRUGS (4)
  1. XANAX [Suspect]
     Active Substance: ALPRAZOLAM
     Dosage: 10 GTT, TOTAL
     Dates: start: 20190629, end: 20190629
  2. RISCHIARIL [Concomitant]
     Dosage: UNK
  3. SAMYR [ADEMETIONINE] [Concomitant]
     Dosage: UNK
  4. STILNOX [Interacting]
     Active Substance: ZOLPIDEM TARTRATE
     Dosage: 1 DF, TOTAL
     Dates: start: 20190629, end: 20190629

REACTIONS (2)
  - Drug interaction [Recovering/Resolving]
  - Sopor [Recovering/Resolving]

NARRATIVE: CASE EVENT DATE: 20190629
